FAERS Safety Report 6024384-6 (Version None)
Quarter: 2008Q4

REPORT INFORMATION
  Report Type: 
  Country: None (occurrence: None)
  Receive Date: 20081230
  Receipt Date: 20081230
  Transmission Date: 20090506
  Serious: No
  Sender: FDA-Public Use
  Company Number: None

PATIENT
  Age: 40 Year
  Sex: Female
  Weight: 65.7716 kg

DRUGS (1)
  1. TRAMADOL HCL [Suspect]
     Indication: DRUG DISPENSING ERROR
     Dates: start: 20081215, end: 20081225

REACTIONS (11)
  - AGITATION [None]
  - ASTHENIA [None]
  - BACK PAIN [None]
  - DISORIENTATION [None]
  - DRUG DISPENSING ERROR [None]
  - MALAISE [None]
  - MEDICATION ERROR [None]
  - NAUSEA [None]
  - PAIN IN EXTREMITY [None]
  - POOR QUALITY SLEEP [None]
  - WRONG DRUG ADMINISTERED [None]
